FAERS Safety Report 23040145 (Version 1)
Quarter: 2023Q4

REPORT INFORMATION
  Report Type: Report from Study
  Country: KR (occurrence: KR)
  Receive Date: 20231006
  Receipt Date: 20231006
  Transmission Date: 20240110
  Serious: Yes (Hospitalization)
  Sender: FDA-Public Use
  Company Number: KR-JNJFOC-20230862485

PATIENT
  Age: 58 Year
  Sex: Male
  Weight: 56.7 kg

DRUGS (12)
  1. TECLISTAMAB [Suspect]
     Active Substance: TECLISTAMAB
     Indication: Plasma cell myeloma
     Route: 058
     Dates: start: 20230127
  2. TECLISTAMAB [Suspect]
     Active Substance: TECLISTAMAB
     Dosage: C7D1
     Route: 058
     Dates: start: 20230719, end: 20230816
  3. TALQUETAMAB [Suspect]
     Active Substance: TALQUETAMAB
     Indication: Plasma cell myeloma
     Route: 058
     Dates: start: 20230127
  4. TALQUETAMAB [Suspect]
     Active Substance: TALQUETAMAB
     Dosage: C7D1
     Route: 058
     Dates: start: 20230719, end: 20230816
  5. AMARYL [Concomitant]
     Active Substance: GLIMEPIRIDE
     Indication: Hyperglycaemia
     Route: 048
     Dates: start: 20230216
  6. AMARYL [Concomitant]
     Active Substance: GLIMEPIRIDE
     Route: 048
     Dates: start: 20230216
  7. CEBETABS [Concomitant]
     Indication: Vitamin supplementation
     Route: 048
     Dates: start: 20230216
  8. DESOXIMETASONE [Concomitant]
     Active Substance: DESOXIMETASONE
     Indication: Prophylaxis
     Route: 061
     Dates: start: 20230216
  9. FOLIC ACID [Concomitant]
     Active Substance: FOLIC ACID
     Indication: Vitamin supplementation
     Route: 048
     Dates: start: 20230216
  10. GLIMEL [GLIMEPIRIDE] [Concomitant]
     Indication: Hyperglycaemia
     Route: 048
     Dates: start: 20230216
  11. VITAMIN C [Concomitant]
     Active Substance: ASCORBIC ACID
     Indication: Vitamin supplementation
     Route: 048
     Dates: start: 20230216
  12. GEMIGLIPTIN\METFORMIN [Concomitant]
     Active Substance: GEMIGLIPTIN\METFORMIN
     Indication: Hyperglycaemia
     Route: 048
     Dates: start: 20230216

REACTIONS (1)
  - Pneumonitis [Recovered/Resolved]

NARRATIVE: CASE EVENT DATE: 20230825
